FAERS Safety Report 10775056 (Version 3)
Quarter: 2015Q1

REPORT INFORMATION
  Report Type: Spontaneous
  Country: BR (occurrence: BR)
  Receive Date: 20150209
  Receipt Date: 20150323
  Transmission Date: 20150721
  Serious: Yes (Other)
  Sender: FDA-Public Use
  Company Number: BR-JNJFOC-20150201188

PATIENT
  Age: 48 Year
  Sex: Male
  Weight: 97.96 kg

DRUGS (2)
  1. XARELTO [Suspect]
     Active Substance: RIVAROXABAN
     Indication: THROMBOSIS PROPHYLAXIS
     Route: 048
     Dates: start: 20150125, end: 20150220
  2. XARELTO [Suspect]
     Active Substance: RIVAROXABAN
     Indication: TENDON OPERATION
     Route: 048
     Dates: start: 20150125, end: 20150220

REACTIONS (12)
  - Aphagia [Recovered/Resolved]
  - Heart rate increased [Recovered/Resolved]
  - Heart rate increased [Recovered/Resolved]
  - Blood pressure increased [Recovered/Resolved]
  - Dry mouth [Recovered/Resolved]
  - Blood pressure increased [Recovered/Resolved]
  - Choking sensation [Recovered/Resolved]
  - Dry throat [Recovered/Resolved]
  - Dry mouth [Unknown]
  - Off label use [Unknown]
  - Dry throat [Unknown]
  - Throat tightness [Unknown]

NARRATIVE: CASE EVENT DATE: 20150125
